FAERS Safety Report 9735866 (Version 1)
Quarter: 2013Q4

REPORT INFORMATION
  Report Type: Spontaneous
  Country: US (occurrence: US)
  Receive Date: 20131206
  Receipt Date: 20131206
  Transmission Date: 20140711
  Serious: No
  Sender: FDA-Public Use
  Company Number: US-GILEAD-2009-0024093

PATIENT
  Sex: Female
  Weight: 65.77 kg

DRUGS (15)
  1. LETAIRIS [Suspect]
     Indication: PULMONARY ARTERIAL HYPERTENSION
     Route: 048
     Dates: start: 20090501
  2. LETAIRIS [Suspect]
     Route: 048
     Dates: start: 20090501
  3. REVATIO [Concomitant]
  4. SYNTHROID [Concomitant]
  5. ALLEGRA [Concomitant]
  6. DIGOXIN [Concomitant]
  7. FISH OIL [Concomitant]
  8. CRESTOR [Concomitant]
  9. ASPIRIN [Concomitant]
  10. MULTIVITAMIN [Concomitant]
  11. CALCIUM 500 + D [Concomitant]
  12. PLAVIX [Concomitant]
  13. ALBUTEROL [Concomitant]
  14. VITAMIN E [Concomitant]
  15. MAGNESIUM [Concomitant]

REACTIONS (4)
  - Feeling abnormal [Unknown]
  - Nasal congestion [Unknown]
  - Decreased appetite [Unknown]
  - Insomnia [Unknown]
